FAERS Safety Report 9541794 (Version 3)
Quarter: 2013Q4

REPORT INFORMATION
  Report Type: Spontaneous
  Country: US (occurrence: US)
  Receive Date: 20130923
  Receipt Date: 20131213
  Transmission Date: 20140711
  Serious: Yes (Hospitalization)
  Sender: FDA-Public Use
  Company Number: US-JNJFOC-20130907416

PATIENT
  Age: 32 Year
  Sex: Male
  Weight: 65.77 kg

DRUGS (11)
  1. INVEGA SUSTENNA [Suspect]
     Indication: SCHIZOPHRENIA
     Route: 030
     Dates: start: 20130806
  2. INVEGA SUSTENNA [Suspect]
     Indication: SCHIZOPHRENIA
     Dosage: SECOND INITIATION DOSE
     Route: 030
     Dates: start: 20130802
  3. INVEGA SUSTENNA [Suspect]
     Indication: SCHIZOPHRENIA
     Route: 030
  4. INVEGA [Suspect]
     Indication: SCHIZOPHRENIA
     Route: 048
  5. RISPERDAL [Suspect]
     Indication: PSYCHOTIC DISORDER
     Route: 048
     Dates: start: 20130802
  6. RISPERDAL [Suspect]
     Indication: PSYCHOTIC DISORDER
     Route: 048
     Dates: start: 20130731
  7. RISPERDAL [Suspect]
     Indication: PSYCHOTIC DISORDER
     Dosage: 1 MG IN A.M AND 2 MG AT HOUR OF SLEEP
     Route: 048
  8. RISPERDAL [Suspect]
     Indication: SCHIZOPHRENIA
     Dosage: 1 MG IN A.M AND 2 MG AT HOUR OF SLEEP
     Route: 048
  9. RISPERDAL [Suspect]
     Indication: SCHIZOPHRENIA
     Route: 048
     Dates: start: 20130731
  10. RISPERDAL [Suspect]
     Indication: SCHIZOPHRENIA
     Route: 048
     Dates: start: 20130802
  11. COGENTIN [Concomitant]
     Indication: PROPHYLAXIS
     Route: 065

REACTIONS (1)
  - Neuroleptic malignant syndrome [Recovered/Resolved]
